FAERS Safety Report 12610685 (Version 2)
Quarter: 2016Q3

REPORT INFORMATION
  Report Type: Spontaneous
  Country: US (occurrence: US)
  Receive Date: 20160801
  Receipt Date: 20160907
  Transmission Date: 20161109
  Serious: Yes (Hospitalization)
  Sender: FDA-Public Use
  Company Number: US-ASTELLAS-2016US023803

PATIENT
  Sex: Male

DRUGS (2)
  1. XTANDI [Suspect]
     Active Substance: ENZALUTAMIDE
     Indication: PROSTATE CANCER METASTATIC
     Dosage: 160 MG, ONCE DAILY (4 CAPSULES ONCE A DAY)
     Route: 048
     Dates: start: 20160523, end: 20160628
  2. XTANDI [Suspect]
     Active Substance: ENZALUTAMIDE
     Indication: METASTASES TO BONE
     Dosage: 160 MG, ONCE DAILY (4 CAPSULES ONCE A DAY)
     Route: 048
     Dates: start: 20160713, end: 201607

REACTIONS (9)
  - Malaise [Unknown]
  - Fatigue [Unknown]
  - Upper respiratory tract infection [Unknown]
  - Infection [Unknown]
  - Feeding disorder [Unknown]
  - Weight decreased [Unknown]
  - Vomiting [Unknown]
  - Dizziness [Unknown]
  - White blood cell count decreased [Unknown]
